FAERS Safety Report 10667300 (Version 1)
Quarter: 2014Q4

REPORT INFORMATION
  Report Type: Report from Study
  Country: US (occurrence: US)
  Receive Date: 20141222
  Receipt Date: 20141222
  Transmission Date: 20150529
  Serious: Yes (Hospitalization)
  Sender: FDA-Public Use
  Company Number: PHEH2014US024827

PATIENT
  Age: 50 Year
  Sex: Female

DRUGS (1)
  1. GILENYA [Suspect]
     Active Substance: FINGOLIMOD HYDROCHLORIDE
     Indication: MULTIPLE SCLEROSIS
     Dosage: 0.5 MG, QD
     Route: 048

REACTIONS (7)
  - Coordination abnormal [Unknown]
  - Muscular weakness [Unknown]
  - Type 2 diabetes mellitus [Unknown]
  - Enthesopathy [Unknown]
  - Fall [Unknown]
  - Gait disturbance [Unknown]
  - Depression [Unknown]

NARRATIVE: CASE EVENT DATE: 20141108
